FAERS Safety Report 18187270 (Version 1)
Quarter: 2020Q3

REPORT INFORMATION
  Report Type: Spontaneous
  Country: US (occurrence: US)
  Receive Date: 20200824
  Receipt Date: 20200824
  Transmission Date: 20201103
  Serious: Yes (Other)
  Sender: FDA-Public Use
  Company Number: US-PFIZER INC-2020324644

PATIENT
  Age: 66 Year
  Sex: Female
  Weight: 70.76 kg

DRUGS (2)
  1. DILANTIN [Suspect]
     Active Substance: PHENYTOIN
     Indication: SEIZURE
     Dosage: THREE 100 MG CAPSULES AT NIGHT
     Route: 048
  2. PREGABALIN. [Concomitant]
     Active Substance: PREGABALIN
     Dosage: 25 MG, 3X/DAY
     Route: 048

REACTIONS (4)
  - Intentional product use issue [Unknown]
  - Seizure [Unknown]
  - Toxicity to various agents [Unknown]
  - Feeling drunk [Unknown]
